FAERS Safety Report 21082898 (Version 1)
Quarter: 2022Q3

REPORT INFORMATION
  Report Type: Spontaneous
  Country: IT (occurrence: IT)
  Receive Date: 20220714
  Receipt Date: 20220714
  Transmission Date: 20221027
  Serious: Yes (Other)
  Sender: FDA-Public Use
  Company Number: IT-NOVARTISPH-NVSC2022IT158991

PATIENT
  Age: 71 Year
  Sex: Male

DRUGS (5)
  1. OXALIPLATIN [Suspect]
     Active Substance: OXALIPLATIN
     Indication: Rectal cancer stage III
     Dosage: UNK, 3 CYCLES AS XELOX REGIMEN
     Route: 062
     Dates: start: 201905, end: 201907
  2. OXALIPLATIN [Suspect]
     Active Substance: OXALIPLATIN
     Dosage: UNK, 3 CYCLES AS XELOX REGIMEN
     Route: 065
     Dates: end: 201911
  3. CAPECITABINE [Suspect]
     Active Substance: CAPECITABINE
     Indication: Rectal cancer stage III
     Dosage: UNK, 3 CYCLES AS XELOX REGIMEN
     Route: 062
     Dates: start: 201905, end: 201907
  4. CAPECITABINE [Suspect]
     Active Substance: CAPECITABINE
     Dosage: UNK, UNKNOWN (CONCOMITANT AS CHEMO-RADIOTHERAPY TREATMENT)
     Route: 065
     Dates: start: 201907, end: 201909
  5. CAPECITABINE [Suspect]
     Active Substance: CAPECITABINE
     Dosage: UNK, 3 CYCLES AS XELOX REGIMEN
     Route: 065
     Dates: end: 201911

REACTIONS (2)
  - Neurotoxicity [Unknown]
  - Diarrhoea [Unknown]
